FAERS Safety Report 24394443 (Version 1)
Quarter: 2024Q4

REPORT INFORMATION
  Report Type: Spontaneous
  Country: CN (occurrence: CN)
  Receive Date: 20241004
  Receipt Date: 20241004
  Transmission Date: 20250115
  Serious: Yes (Death)
  Sender: NOVITIUM PHARMA
  Company Number: CN-NOVITIUMPHARMA-2024CNNVP02076

PATIENT
  Age: 6 Year
  Sex: Male

DRUGS (12)
  1. LEVOFLOXACIN [Suspect]
     Active Substance: LEVOFLOXACIN
     Indication: Human polyomavirus infection
  2. LEVOFLOXACIN [Suspect]
     Active Substance: LEVOFLOXACIN
     Indication: Pneumonia
  3. CIDOFOVIR [Concomitant]
     Active Substance: CIDOFOVIR
     Indication: Human polyomavirus infection
  4. CIDOFOVIR [Concomitant]
     Active Substance: CIDOFOVIR
     Indication: Pneumonia
  5. GANCICLOVIR [Concomitant]
     Active Substance: GANCICLOVIR
     Indication: Human polyomavirus infection
  6. GANCICLOVIR [Concomitant]
     Active Substance: GANCICLOVIR
     Indication: Pneumonia
  7. MEROPENEM [Concomitant]
     Active Substance: MEROPENEM
     Indication: Human polyomavirus infection
  8. MEROPENEM [Concomitant]
     Active Substance: MEROPENEM
     Indication: Pneumonia
  9. CASPOFUNGIN [Concomitant]
     Active Substance: CASPOFUNGIN
     Indication: Human polyomavirus infection
  10. CASPOFUNGIN [Concomitant]
     Active Substance: CASPOFUNGIN
     Indication: Pneumonia
  11. HUMAN IMMUNOGLOBULIN G [Concomitant]
     Active Substance: HUMAN IMMUNOGLOBULIN G
     Indication: Human polyomavirus infection
     Route: 042
  12. HUMAN IMMUNOGLOBULIN G [Concomitant]
     Active Substance: HUMAN IMMUNOGLOBULIN G
     Indication: Pneumonia

REACTIONS (1)
  - Drug ineffective [Fatal]
